FAERS Safety Report 8231881-1 (Version None)
Quarter: 2012Q1

REPORT INFORMATION
  Report Type: 
  Country: None (occurrence: None)
  Receive Date: 20120320
  Receipt Date: 20120314
  Transmission Date: 20120608
  Serious: Yes (Death, Hospitalization, Disabling)
  Sender: FDA-Public Use
  Company Number: GER/UKI/12/0023456

PATIENT
  Age: 80 Year
  Sex: Female
  Weight: 33 kg

DRUGS (7)
  1. DONEPEZIL HCL [Suspect]
     Indication: DEMENTIA
     Dosage: 10 MG , ORAL
     Route: 048
     Dates: start: 20110407
  2. CITALOPRAM HYDROBROMIDE [Suspect]
     Indication: DEPRESSION
     Dosage: 20 MG, ORAL
     Route: 048
     Dates: start: 20101207
  3. CODEINE PHOSPHATE (CODEINE PHOSPHATE) [Concomitant]
  4. TPN [Concomitant]
  5. CALCICHEW D3 (LEKOVIT CA) [Concomitant]
  6. ASPIRIN [Suspect]
     Indication: PRODUCT USED FOR UNKNOWN INDICATION
     Dosage: 75 MG, ORAL
     Route: 048
  7. RISEDRONATE SODIUM [Concomitant]

REACTIONS (2)
  - GASTRIC ULCER [None]
  - GASTROINTESTINAL HAEMORRHAGE [None]
